FAERS Safety Report 9559623 (Version 1)
Quarter: 2013Q3

REPORT INFORMATION
  Report Type: Spontaneous
  Country: US (occurrence: US)
  Receive Date: 20130927
  Receipt Date: 20130927
  Transmission Date: 20140515
  Serious: Yes (Hospitalization)
  Sender: FDA-Public Use
  Company Number: US-BAYER-2013-117032

PATIENT
  Age: 27 Year
  Sex: Female

DRUGS (8)
  1. YAZ [Suspect]
  2. OCELLA [Suspect]
  3. YASMIN [Suspect]
  4. VICODIN [Concomitant]
  5. ESZOPICLONE [Concomitant]
  6. PROTONIX [Concomitant]
  7. DARVON [Concomitant]
  8. ULTRAM [Concomitant]

REACTIONS (1)
  - Pulmonary embolism [None]
